FAERS Safety Report 7845660-8 (Version None)
Quarter: 2011Q4

REPORT INFORMATION
  Report Type: 
  Country: None (occurrence: None)
  Receive Date: 20111018
  Receipt Date: 20111011
  Transmission Date: 20120403
  Serious: Yes (Life-Threatening, Hospitalization, Other)
  Sender: FDA-Public Use
  Company Number: 2010SP046931

PATIENT
  Age: 27 Year
  Sex: Female
  Weight: 63.5036 kg

DRUGS (1)
  1. NUVARING [Suspect]
     Indication: CONTRACEPTION
     Dates: start: 20080101, end: 20080901

REACTIONS (35)
  - FEAR [None]
  - FUNGAL INFECTION [None]
  - CHEST PAIN [None]
  - PHLEBITIS [None]
  - ABDOMINAL PAIN UPPER [None]
  - VENOUS RECANALISATION [None]
  - THROMBOPHLEBITIS SUPERFICIAL [None]
  - CARDIOMEGALY [None]
  - PALPITATIONS [None]
  - INTERNATIONAL NORMALISED RATIO INCREASED [None]
  - VEIN DISORDER [None]
  - ILIAC VEIN OCCLUSION [None]
  - VENOUS OCCLUSION [None]
  - POLYCYSTIC OVARIES [None]
  - VENOUS INSUFFICIENCY [None]
  - THROMBOSIS [None]
  - OEDEMA PERIPHERAL [None]
  - MAY-THURNER SYNDROME [None]
  - TREATMENT FAILURE [None]
  - CONTUSION [None]
  - PLATELET COUNT INCREASED [None]
  - MATERNAL EXPOSURE BEFORE PREGNANCY [None]
  - WEIGHT INCREASED [None]
  - ATELECTASIS [None]
  - HAEMORRHAGE [None]
  - PREGNANCY [None]
  - DEPRESSION [None]
  - COLLATERAL CIRCULATION [None]
  - MAMMOPLASTY [None]
  - ATTENTION DEFICIT/HYPERACTIVITY DISORDER [None]
  - ALOPECIA [None]
  - DEEP VEIN THROMBOSIS [None]
  - BREAST HAEMATOMA [None]
  - INTERNATIONAL NORMALISED RATIO DECREASED [None]
  - ANAEMIA [None]
